FAERS Safety Report 8001144-8 (Version None)
Quarter: 2011Q4

REPORT INFORMATION
  Report Type: 
  Country: None (occurrence: None)
  Receive Date: 20111219
  Receipt Date: 20111205
  Transmission Date: 20120403
  Serious: Yes (Life-Threatening, Hospitalization, Disabling, Other)
  Sender: FDA-Public Use
  Company Number: 2009AL004859

PATIENT
  Age: 71 Year
  Sex: Male

DRUGS (97)
  1. ADVAIR DISKUS 100/50 [Concomitant]
  2. BACTRIM [Concomitant]
  3. COREG [Concomitant]
  4. HYDROCODONE [Concomitant]
  5. LYRICA [Concomitant]
  6. PHENERGAN [Concomitant]
  7. PROCRIT [Concomitant]
  8. SOMA [Concomitant]
  9. TALWIN [Concomitant]
  10. TEMAZEPAM [Concomitant]
  11. WARFARIN SODIUM [Concomitant]
  12. AVELOX [Concomitant]
  13. BEXTRA [Concomitant]
  14. COUMADIN [Concomitant]
  15. ENALAPRIL MALEATE [Concomitant]
  16. LEVOTHYROXINE SODIUM [Concomitant]
  17. METHYLPREDNISOLONE ACETATE [Concomitant]
  18. MUPIROCIN [Concomitant]
  19. MUCINEX [Concomitant]
  20. PENTAZCINE [Concomitant]
  21. POLYVALENT [Concomitant]
  22. SINGULAIR [Concomitant]
  23. TETANUS [Concomitant]
  24. VINCRISTINE [Concomitant]
  25. ATIVAN [Concomitant]
  26. DARVOCET-N 100 [Concomitant]
  27. DIOVAN [Concomitant]
  28. HEPARIN [Concomitant]
  29. APAP TAB [Concomitant]
  30. AMOXICILLIN CALVULANATE [Concomitant]
  31. LEVAQUIN [Concomitant]
  32. LOPRESSOR [Concomitant]
  33. MORPHINE [Concomitant]
  34. NEULASTA [Concomitant]
  35. NITROGLYCERIN [Concomitant]
  36. SALMETEROL [Concomitant]
  37. ZOSYN [Concomitant]
  38. ALLEGRA [Concomitant]
  39. ALLOPURINOL [Concomitant]
  40. AZITHROMYCIN [Concomitant]
  41. CARISOPRODOL [Concomitant]
  42. CIPROFLOXACIN [Concomitant]
  43. FUROSEMIDE [Concomitant]
  44. KLOR-CON [Concomitant]
  45. NALOXONE [Concomitant]
  46. SILVER SULFA [Concomitant]
  47. TIZANIDINE HCL [Concomitant]
  48. ZANAFLEX [Concomitant]
  49. AMARYL [Concomitant]
  50. AMIODARONE [Concomitant]
  51. PRILOSEC [Concomitant]
  52. DIHYDOCOD [Concomitant]
  53. CARVEDILOL [Concomitant]
  54. CYTOXAN [Concomitant]
  55. GLIMEPIRIDE [Concomitant]
  56. ERTAB [Concomitant]
  57. LARVTOILUL [Concomitant]
  58. LORTAB [Concomitant]
  59. RESTORIL [Concomitant]
  60. SULFAMETHOXAZOLE AND TRIMETHOPRIM [Concomitant]
  61. DIGOXIN [Suspect]
     Indication: PRODUCT USED FOR UNKNOWN INDICATION
     Dosage: 0.25 MG; PO
     Route: 048
     Dates: start: 20000810
  62. CEFIRIZINE [Concomitant]
  63. COPHENE [Concomitant]
  64. FERROUS SULFATE TAB [Concomitant]
  65. FLAGYL [Concomitant]
  66. LIDODERM [Concomitant]
  67. RELAFEN [Concomitant]
  68. RITUXAN [Concomitant]
  69. SIMVASTATIN [Concomitant]
  70. ZYRTEC [Concomitant]
  71. ZOCOR [Concomitant]
  72. NASACORT [Concomitant]
  73. APAP/CAFF/ [Concomitant]
  74. ASPIRIN [Concomitant]
  75. AUGMENTIN [Concomitant]
  76. BACTROBAN [Concomitant]
  77. DOXYCYCLINE [Concomitant]
  78. GABAPENTIN [Concomitant]
  79. POTASSIUM CHLORIDE [Concomitant]
  80. LISINOPRIL [Concomitant]
  81. LOTENSIN [Concomitant]
  82. METRONIDAZOLE [Concomitant]
  83. PACERONE [Concomitant]
  84. SKELAXIN [Concomitant]
  85. VASOTEC [Concomitant]
  86. XOPENEX [Concomitant]
  87. CEFDINIR [Concomitant]
  88. COMPAZINE [Concomitant]
  89. CORDARONE [Concomitant]
  90. CYCLOBENZAPRINE [Concomitant]
  91. MONOPRIL [Concomitant]
  92. OXYCODONE HCL [Concomitant]
  93. PEPCID [Concomitant]
  94. PREDNISONE TAB [Concomitant]
  95. TRIMOX [Concomitant]
  96. XANAX [Concomitant]
  97. PROCHLORPERAZINE [Concomitant]

REACTIONS (94)
  - LETHARGY [None]
  - HYPOGLYCAEMIA [None]
  - ATRIAL FIBRILLATION [None]
  - CARDIOMEGALY [None]
  - OEDEMA PERIPHERAL [None]
  - CARDIAC FAILURE CONGESTIVE [None]
  - HYPOVENTILATION [None]
  - PAIN IN EXTREMITY [None]
  - BLOOD SODIUM DECREASED [None]
  - BLOOD BICARBONATE INCREASED [None]
  - VENTILATION/PERFUSION SCAN ABNORMAL [None]
  - PULMONARY FIBROSIS [None]
  - MULTIPLE INJURIES [None]
  - HYPOVOLAEMIA [None]
  - ANGINA UNSTABLE [None]
  - ATRIOVENTRICULAR BLOCK COMPLETE [None]
  - LUNG HYPERINFLATION [None]
  - RENAL FAILURE [None]
  - ASTHENIA [None]
  - HYPERCAPNIA [None]
  - OSTEOARTHRITIS [None]
  - MYOCARDIAL ISCHAEMIA [None]
  - CHEST PAIN [None]
  - ACIDOSIS [None]
  - APLASTIC ANAEMIA [None]
  - SUPRAVENTRICULAR TACHYCARDIA [None]
  - AVULSION FRACTURE [None]
  - WRIST FRACTURE [None]
  - OSTEOSCLEROSIS [None]
  - PAIN [None]
  - HEART INJURY [None]
  - PYREXIA [None]
  - RENAL FAILURE ACUTE [None]
  - BACK PAIN [None]
  - MUSCULOSKELETAL PAIN [None]
  - POLYNEUROPATHY [None]
  - FALL [None]
  - PULMONARY EMBOLISM [None]
  - NAUSEA [None]
  - HYPOPHAGIA [None]
  - DYSPNOEA EXERTIONAL [None]
  - SYNCOPE [None]
  - SYSTEMIC INFLAMMATORY RESPONSE SYNDROME [None]
  - CHILLS [None]
  - PRODUCTIVE COUGH [None]
  - WHITE BLOOD CELL COUNT INCREASED [None]
  - CHOLELITHIASIS [None]
  - RESPIRATORY DISTRESS [None]
  - DEEP VEIN THROMBOSIS [None]
  - BRADYCARDIA [None]
  - LAZINESS [None]
  - DIVERTICULITIS [None]
  - BUNDLE BRANCH BLOCK LEFT [None]
  - WOUND [None]
  - PNEUMONIA [None]
  - UNEVALUABLE EVENT [None]
  - CARDIAC FAILURE [None]
  - BRONCHITIS [None]
  - DIARRHOEA [None]
  - HYPOTENSION [None]
  - NECK MASS [None]
  - ARTERIOSCLEROSIS CORONARY ARTERY [None]
  - AGRANULOCYTOSIS [None]
  - VENTRICULAR TACHYCARDIA [None]
  - BACTERIAL SEPSIS [None]
  - RENAL DISORDER [None]
  - TESTICULAR ABSCESS [None]
  - COGNITIVE DISORDER [None]
  - WHITE BLOOD CELL COUNT DECREASED [None]
  - UMBILICAL HERNIA [None]
  - RADIUS FRACTURE [None]
  - SHOCK [None]
  - URETERAL DISORDER [None]
  - INFECTION [None]
  - LACERATION [None]
  - NEUROPATHY PERIPHERAL [None]
  - HYPOXIA [None]
  - ASTHMA [None]
  - HAEMATOMA [None]
  - SPUTUM DISCOLOURED [None]
  - FIBRIN D DIMER INCREASED [None]
  - ACUTE RESPIRATORY FAILURE [None]
  - DYSPNOEA [None]
  - CORONARY ARTERY DISEASE [None]
  - SOMNOLENCE [None]
  - VOMITING [None]
  - HYPERMETABOLISM [None]
  - ACUTE MYOCARDIAL INFARCTION [None]
  - STOMATITIS [None]
  - ARTHROPATHY [None]
  - POISONING [None]
  - MITRAL VALVE INCOMPETENCE [None]
  - CONTUSION [None]
  - ATELECTASIS [None]
